FAERS Safety Report 13991063 (Version 1)
Quarter: 2017Q3

REPORT INFORMATION
  Report Type: Spontaneous
  Country: GB (occurrence: GB)
  Receive Date: 20170920
  Receipt Date: 20170920
  Transmission Date: 20171128
  Serious: Yes (Other)
  Sender: FDA-Public Use
  Company Number: GB-AUROBINDO-AUR-APL-2017-40450

PATIENT
  Age: 21 Year
  Sex: Male

DRUGS (2)
  1. TRAMADOL. [Suspect]
     Active Substance: TRAMADOL
     Indication: PRODUCT USED FOR UNKNOWN INDICATION
     Dosage: UNK
     Route: 048
     Dates: end: 2016
  2. TRAMADOL. [Suspect]
     Active Substance: TRAMADOL
     Indication: PAIN
     Dosage: 25 DF,
     Route: 048

REACTIONS (7)
  - Seizure [Recovered/Resolved]
  - Euphoric mood [Recovered/Resolved]
  - Withdrawal syndrome [Recovered/Resolved]
  - Prescription drug used without a prescription [Unknown]
  - Formication [Recovered/Resolved]
  - Overdose [Recovered/Resolved]
  - Dependence [Recovered/Resolved]

NARRATIVE: CASE EVENT DATE: 2009
